FAERS Safety Report 13739160 (Version 1)
Quarter: 2017Q3

REPORT INFORMATION
  Report Type: Spontaneous
  Country: US (occurrence: US)
  Receive Date: 20170710
  Receipt Date: 20170710
  Transmission Date: 20171127
  Serious: No
  Sender: FDA-Public Use
  Company Number: US-SAOL THERAPEUTICS-2016SAO01178

PATIENT
  Sex: Female

DRUGS (8)
  1. COMPOUNDED BACLOFEN [Suspect]
     Active Substance: BACLOFEN
     Indication: PAIN
     Dosage: 736 ?G, \DAY
     Route: 037
  2. BUPIVACAINE. [Suspect]
     Active Substance: BUPIVACAINE
  3. BACLOFEN. [Concomitant]
     Active Substance: BACLOFEN
     Route: 048
  4. BACLOFEN. [Suspect]
     Active Substance: BACLOFEN
  5. HYDROMORPHONE [Suspect]
     Active Substance: HYDROMORPHONE
     Dosage: 14.72 MG, \DAY
     Route: 037
  6. BACLOFEN. [Suspect]
     Active Substance: BACLOFEN
  7. HYDROMORPHONE [Suspect]
     Active Substance: HYDROMORPHONE
  8. BUPIVACAINE. [Suspect]
     Active Substance: BUPIVACAINE
     Dosage: 9.81 MG, \DAY
     Route: 037

REACTIONS (4)
  - Device infusion issue [Unknown]
  - Complication associated with device [Not Recovered/Not Resolved]
  - Off label use [Unknown]
  - Therapy non-responder [Not Recovered/Not Resolved]

NARRATIVE: CASE EVENT DATE: 2016
